FAERS Safety Report 5519250-6 (Version None)
Quarter: 2007Q4

REPORT INFORMATION
  Report Type: 
  Country: None (occurrence: None)
  Receive Date: 20071116
  Receipt Date: 20071105
  Transmission Date: 20080405
  Serious: Yes (Hospitalization)
  Sender: FDA-Public Use
  Company Number: FR-ROCHE-509653

PATIENT
  Age: 67 Year
  Sex: Male
  Weight: 78 kg

DRUGS (2)
  1. CAPECITABINE [Suspect]
     Route: 048
     Dates: start: 20070312
  2. OXALIPLATIN [Suspect]
     Route: 042
     Dates: start: 20070312

REACTIONS (7)
  - BACILLUS INFECTION [None]
  - BACTEROIDES INFECTION [None]
  - CULTURE POSITIVE [None]
  - ENTEROCOCCAL INFECTION [None]
  - FUSOBACTERIUM INFECTION [None]
  - PELVIC ABSCESS [None]
  - STREPTOCOCCAL INFECTION [None]
